FAERS Safety Report 9795860 (Version 2)
Quarter: 2014Q1

REPORT INFORMATION
  Report Type: Spontaneous
  Country: JP (occurrence: JP)
  Receive Date: 20140103
  Receipt Date: 20140103
  Transmission Date: 20141002
  Serious: Yes (Other)
  Sender: FDA-Public Use
  Company Number: JP-NOVOPROD-395663

PATIENT
  Age: 84 Year
  Sex: Female

DRUGS (1)
  1. VICTOZA HIKACHU INJECTION [Suspect]
     Indication: DIABETES MELLITUS
     Dosage: 0.30 MG, QD
     Route: 058
     Dates: start: 201212

REACTIONS (3)
  - Bile duct stone [Unknown]
  - Cholangitis acute [Unknown]
  - Blood glucose increased [Unknown]
